FAERS Safety Report 17707628 (Version 2)
Quarter: 2020Q2

REPORT INFORMATION
  Report Type: Spontaneous
  Country: US (occurrence: US)
  Receive Date: 20200424
  Receipt Date: 20200429
  Transmission Date: 20200714
  Serious: Yes (Death, Other)
  Sender: FDA-Public Use
  Company Number: US-INCYTE CORPORATION-2020IN003814

PATIENT

DRUGS (2)
  1. JAKAFI [Suspect]
     Active Substance: RUXOLITINIB
     Indication: MYELOPROLIFERATIVE NEOPLASM
  2. JAKAFI [Suspect]
     Active Substance: RUXOLITINIB
     Indication: MYELODYSPLASTIC SYNDROME
     Dosage: 10 MILLIGRAM, QAM
     Route: 048

REACTIONS (5)
  - Cardiac failure congestive [Unknown]
  - Cardiac arrest [Fatal]
  - Pneumonia [Fatal]
  - Off label use [Unknown]
  - Multimorbidity [Unknown]

NARRATIVE: CASE EVENT DATE: 20200423
